FAERS Safety Report 8322850-1 (Version None)
Quarter: 2012Q2

REPORT INFORMATION
  Report Type: 
  Country: None (occurrence: None)
  Receive Date: 20120430
  Receipt Date: 20100806
  Transmission Date: 20120825
  Serious: Yes (Other)
  Sender: FDA-Public Use
  Company Number: US-TEVA-2010004168

PATIENT
  Sex: Male
  Weight: 88.53 kg

DRUGS (4)
  1. CELEBREX [Concomitant]
     Dates: start: 20090101, end: 20100401
  2. PROVIGIL [Suspect]
     Indication: SOMNOLENCE
     Dosage: 200 MILLIGRAM;
     Route: 048
     Dates: start: 20100501, end: 20100801
  3. PROVIGIL [Suspect]
     Route: 048
     Dates: start: 19990101
  4. HYDROCODONE [Concomitant]
     Indication: PAIN

REACTIONS (5)
  - ANXIETY [None]
  - INHIBITORY DRUG INTERACTION [None]
  - THERAPEUTIC RESPONSE UNEXPECTED [None]
  - MEMORY IMPAIRMENT [None]
  - ACCIDENTAL OVERDOSE [None]
